FAERS Safety Report 9056114 (Version 2)
Quarter: 2013Q1

REPORT INFORMATION
  Report Type: Spontaneous
  Country: US (occurrence: US)
  Receive Date: 20130205
  Receipt Date: 20130307
  Transmission Date: 20140127
  Serious: Yes (Other)
  Sender: FDA-Public Use
  Company Number: US-BAYER-2013-014918

PATIENT
  Age: 26 Year
  Sex: Female
  Weight: 96 kg

DRUGS (2)
  1. MIRENA [Suspect]
     Indication: CONTRACEPTION
     Dosage: 20 MCG/24HR, CONT
     Route: 015
     Dates: start: 20121106, end: 20130103
  2. MIRENA [Suspect]
     Indication: MENORRHAGIA

REACTIONS (4)
  - Genital haemorrhage [Recovered/Resolved]
  - Device expulsion [None]
  - Device expulsion [None]
  - Medication error [None]
